FAERS Safety Report 12937187 (Version 7)
Quarter: 2020Q4

REPORT INFORMATION
  Report Type: Spontaneous
  Country: US (occurrence: US)
  Receive Date: 20161114
  Receipt Date: 20201204
  Transmission Date: 20210113
  Serious: No
  Sender: FDA-Public Use
  Company Number: US-PFIZER INC-2016517326

PATIENT
  Age: 74 Year
  Sex: Male

DRUGS (8)
  1. SUTENT [Suspect]
     Active Substance: SUNITINIB MALATE
     Indication: RENAL CELL CARCINOMA
     Dosage: 50 MG, FOR 28 DAYS ON AND 14 DAYS OFF
     Route: 048
  2. METOPROLOL. [Concomitant]
     Active Substance: METOPROLOL
     Dosage: UNK
  3. SUTENT [Suspect]
     Active Substance: SUNITINIB MALATE
     Dosage: 37.5 MG (3 CAPSULES OF 12.5 MG), DAILY FOR 4 WEEKS ON, THEN 2 WEEKS OFF)
     Route: 048
     Dates: start: 2017
  4. BENAZEPRIL [Concomitant]
     Active Substance: BENAZEPRIL HYDROCHLORIDE
     Dosage: UNK
  5. SUTENT [Suspect]
     Active Substance: SUNITINIB MALATE
     Dosage: 37.5 MG, 28 DAYS ON AND 14 DAYS OFF
     Route: 048
  6. LASIX [Concomitant]
     Active Substance: FUROSEMIDE
     Dosage: UNK
  7. AMLODIPINE [Concomitant]
     Active Substance: AMLODIPINE BESYLATE
     Dosage: UNK
  8. SUTENT [Suspect]
     Active Substance: SUNITINIB MALATE
     Dosage: 25 MG, 28 DAYS ON AND 14 DAYS OFF
     Route: 048

REACTIONS (1)
  - Neoplasm progression [Unknown]
